FAERS Safety Report 16229552 (Version 1)
Quarter: 2019Q2

REPORT INFORMATION
  Report Type: Report from Study
  Country: US (occurrence: US)
  Receive Date: 20190423
  Receipt Date: 20190423
  Transmission Date: 20190711
  Serious: Yes (Other)
  Sender: FDA-Public Use
  Company Number: PHEH2019US016623

PATIENT
  Sex: Female

DRUGS (1)
  1. ZOMETA [Suspect]
     Active Substance: ZOLEDRONIC ACID
     Indication: PRODUCT USED FOR UNKNOWN INDICATION
     Route: 065

REACTIONS (6)
  - Osteonecrosis of jaw [Unknown]
  - Bone disorder [Unknown]
  - Jaw cyst [Unknown]
  - Neoplasm malignant [Unknown]
  - Bone loss [Unknown]
  - Eating disorder [Unknown]
